FAERS Safety Report 6566966-9 (Version None)
Quarter: 2010Q1

REPORT INFORMATION
  Report Type: 
  Country: None (occurrence: None)
  Receive Date: 20100128
  Receipt Date: 20091118
  Transmission Date: 20100710
  Serious: Yes (Death, Hospitalization, Other)
  Sender: FDA-Public Use
  Company Number: WAES 0904USA01068

PATIENT
  Age: 71 Year
  Sex: Male

DRUGS (22)
  1. PRINIVIL [Suspect]
     Indication: HYPERTENSION
     Dosage: 20 MG/DAILY PO
     Route: 048
     Dates: start: 20090110
  2. FOSINOPRIL SODIUM [Suspect]
  3. NEBIVOLOL HCL [Concomitant]
  4. TORSEMIDE [Suspect]
  5. LERCANIDIPINE [Suspect]
  6. PLACEBO (UNSPECIFIED) [Suspect]
     Indication: TYPE 2 DIABETES MELLITUS
     Dosage: PO
     Route: 048
     Dates: start: 20080730, end: 20090522
  7. MIXTARD HUMAN 70/30 [Suspect]
     Indication: TYPE 2 DIABETES MELLITUS
     Dosage: SC
     Route: 058
     Dates: start: 20080722, end: 20090522
  8. SAXAGLIPTIN [Suspect]
     Indication: TYPE 2 DIABETES MELLITUS
     Dosage: 2.5 MG/ PO
     Route: 048
     Dates: start: 20080730, end: 20090522
  9. DOXAZOSIN MESYLATE [Suspect]
     Indication: HYPERTENSION
     Dosage: 2 MG/DAILY PO
     Route: 048
     Dates: start: 20090114
  10. ASPIRIN [Concomitant]
  11. DIPYRONE TAB [Concomitant]
  12. TRAMADOL HCL [Concomitant]
  13. ALLOPURINOL [Concomitant]
  14. AMLODIPINE [Concomitant]
  15. AMOXICILLIN AND CLAVULANATE POTASSIUM [Concomitant]
  16. ASPIRIN [Concomitant]
  17. BISOPROLOL FUMARATE [Concomitant]
  18. CEFUROXIME SODIUM [Concomitant]
  19. METOPROLOL TARTRATE [Concomitant]
  20. POTASSIUM (UNSPECIFIED) [Concomitant]
  21. TORSEMIDE [Concomitant]
  22. XIPAMIDE [Suspect]

REACTIONS (23)
  - ABDOMINAL PAIN UPPER [None]
  - ARTERIOVENOUS FISTULA OPERATION [None]
  - ARTERIOVENOUS FISTULA THROMBOSIS [None]
  - AZOTAEMIA [None]
  - BLOOD CREATININE INCREASED [None]
  - BLOOD UREA INCREASED [None]
  - BUNDLE BRANCH BLOCK LEFT [None]
  - C-REACTIVE PROTEIN INCREASED [None]
  - CARDIAC ARREST [None]
  - LEFT VENTRICULAR FAILURE [None]
  - LOSS OF CONSCIOUSNESS [None]
  - ORTHOSTATIC HYPERTENSION [None]
  - ORTHOSTATIC HYPOTENSION [None]
  - PLEURAL EFFUSION [None]
  - PNEUMONIA [None]
  - PULMONARY CONGESTION [None]
  - PULMONARY OEDEMA [None]
  - QRS AXIS ABNORMAL [None]
  - RENAL DISORDER [None]
  - SUDDEN CARDIAC DEATH [None]
  - SURGICAL FAILURE [None]
  - SYNCOPE [None]
  - VOMITING [None]
